FAERS Safety Report 6363266-7 (Version None)
Quarter: 2009Q3

REPORT INFORMATION
  Report Type: 
  Country: None (occurrence: None)
  Receive Date: 20090919
  Receipt Date: 20090619
  Transmission Date: 20100115
  Serious: No
  Sender: FDA-Public Use
  Company Number: US-ABBOTT-09P-163-0581051-00

PATIENT
  Sex: Female
  Weight: 68.1 kg

DRUGS (6)
  1. HUMIRA [Suspect]
     Indication: RHEUMATOID ARTHRITIS
     Dosage: PRN FOR FLARES
     Route: 058
     Dates: start: 20050101, end: 20070101
  2. HUMIRA [Suspect]
     Indication: RHEUMATOID ARTHRITIS
     Dosage: PRN FOR FLARES
     Route: 058
     Dates: start: 20070101, end: 20081201
  3. HUMIRA [Suspect]
     Dosage: PRN FOR FLARES
     Route: 058
     Dates: start: 20090401
  4. METHOTREXATE [Concomitant]
     Indication: DRUG USE FOR UNKNOWN INDICATION
  5. PREMARIN [Concomitant]
     Indication: DRUG USE FOR UNKNOWN INDICATION
     Route: 048
  6. FOLIC ACID [Concomitant]
     Indication: DRUG USE FOR UNKNOWN INDICATION

REACTIONS (2)
  - RHEUMATOID ARTHRITIS [None]
  - URINARY TRACT INFECTION [None]
